FAERS Safety Report 8227631-5 (Version None)
Quarter: 2012Q1

REPORT INFORMATION
  Report Type: 
  Country: None (occurrence: None)
  Receive Date: 20120322
  Receipt Date: 20120308
  Transmission Date: 20120608
  Serious: Yes (Other)
  Sender: FDA-Public Use
  Company Number: US-ENDO PHARMACEUTICALS INC.-OPER20120332

PATIENT
  Sex: Male
  Weight: 88.53 kg

DRUGS (3)
  1. OPANA ER [Suspect]
     Route: 048
     Dates: start: 20120201, end: 20120303
  2. OPANA ER [Suspect]
     Indication: PAIN
     Route: 048
     Dates: start: 20110101, end: 20120201
  3. PERCOCET [Suspect]
     Indication: BREAKTHROUGH PAIN
     Dosage: 10/325 MG
     Route: 048
     Dates: start: 20110101

REACTIONS (4)
  - INAPPROPRIATE SCHEDULE OF DRUG ADMINISTRATION [None]
  - CONSTIPATION [None]
  - DRUG PRESCRIBING ERROR [None]
  - DRUG WITHDRAWAL SYNDROME [None]
